FAERS Safety Report 5184120-2 (Version None)
Quarter: 2006Q4

REPORT INFORMATION
  Report Type: 
  Country: None (occurrence: None)
  Receive Date: 20061220
  Receipt Date: 20060210
  Transmission Date: 20070319
  Serious: No
  Sender: FDA-Public Use
  Company Number: US-GLAXOSMITHKLINE-A0593206A

PATIENT
  Age: 52 Year
  Sex: Female

DRUGS (3)
  1. NICODERM CQ [Suspect]
     Dosage: 14MG AS DIRECTED
     Route: 062
     Dates: start: 20060207
  2. STRESS FORMULA (VITAMIN SUPPLEMENT) [Concomitant]
  3. CALCIUM WITH MAGNESIUM [Concomitant]

REACTIONS (13)
  - ANXIETY [None]
  - CHILLS [None]
  - HEART RATE INCREASED [None]
  - HOT FLUSH [None]
  - MUSCLE SPASMS [None]
  - NECK PAIN [None]
  - NERVOUSNESS [None]
  - NIGHTMARE [None]
  - PAIN IN EXTREMITY [None]
  - PALPITATIONS [None]
  - PANIC ATTACK [None]
  - SENSORY DISTURBANCE [None]
  - TREMOR [None]
